FAERS Safety Report 9947710 (Version 1)
Quarter: 2014Q1

REPORT INFORMATION
  Report Type: Report from Study
  Country: US (occurrence: US)
  Receive Date: 20140303
  Receipt Date: 20140303
  Transmission Date: 20141002
  Serious: No
  Sender: FDA-Public Use
  Company Number: US-ABBVIE-13P-163-1064620-00

PATIENT
  Sex: Male
  Weight: 113.5 kg

DRUGS (6)
  1. HUMIRA [Suspect]
     Indication: PSORIASIS
     Dates: start: 2006
  2. HUMIRA [Suspect]
     Indication: PSORIATIC ARTHROPATHY
  3. RISPERIDONE [Concomitant]
     Indication: DEPRESSION
  4. RISPERIDONE [Concomitant]
     Indication: BIPOLAR DISORDER
  5. VENLAFAXINE [Concomitant]
     Indication: DEPRESSION
  6. UNKNOWN TOPICAL OINTMENTS [Concomitant]
     Indication: PSORIASIS

REACTIONS (2)
  - Sinusitis [Recovered/Resolved]
  - Bronchitis [Recovered/Resolved]
